FAERS Safety Report 19896402 (Version 2)
Quarter: 2021Q4

REPORT INFORMATION
  Report Type: Spontaneous
  Country: US (occurrence: US)
  Receive Date: 20210929
  Receipt Date: 20211007
  Transmission Date: 20220303
  Serious: No
  Sender: FDA-Public Use
  Company Number: US-PFIZER INC-202101228130

PATIENT
  Age: 74 Year
  Sex: Female

DRUGS (1)
  1. LATANOPROST [Suspect]
     Active Substance: LATANOPROST
     Indication: Glaucoma
     Dosage: UNK

REACTIONS (4)
  - Drug hypersensitivity [Unknown]
  - Blood pressure abnormal [Recovering/Resolving]
  - Eye injury [Unknown]
  - Tachycardia [Recovering/Resolving]
